FAERS Safety Report 4416095-5 (Version None)
Quarter: 2004Q3

REPORT INFORMATION
  Report Type: 
  Country: None (occurrence: None)
  Receive Date: 20040730
  Receipt Date: 20040714
  Transmission Date: 20050211
  Serious: Yes (Hospitalization)
  Sender: FDA-Public Use
  Company Number: 182846

PATIENT
  Age: 63 Year
  Sex: Female
  Weight: 106.5953 kg

DRUGS (10)
  1. AVONEX [Suspect]
     Indication: MULTIPLE SCLEROSIS
     Dosage: 30 MCG QW IM
     Route: 030
     Dates: end: 20030101
  2. AVONEX [Suspect]
     Indication: MULTIPLE SCLEROSIS
     Dosage: 30 MCG QW IM
     Route: 030
     Dates: start: 20030101
  3. XANAX [Concomitant]
  4. AMBIEN [Concomitant]
  5. SYNTHROID [Concomitant]
  6. MEDICATION NOS [Concomitant]
  7. CELEXA [Concomitant]
  8. LASIX [Concomitant]
  9. POTASSIUM [Concomitant]
  10. PREVACID [Concomitant]

REACTIONS (10)
  - ASTHMA [None]
  - CONTUSION [None]
  - DEPRESSION [None]
  - DYSPEPSIA [None]
  - EMPHYSEMA [None]
  - HEADACHE [None]
  - LOCALISED INFECTION [None]
  - NASOPHARYNGITIS [None]
  - SLEEP APNOEA SYNDROME [None]
  - THROMBOPHLEBITIS SUPERFICIAL [None]
